FAERS Safety Report 7540619-2 (Version None)
Quarter: 2011Q2

REPORT INFORMATION
  Report Type: 
  Country: None (occurrence: None)
  Receive Date: 20110610
  Receipt Date: 20110531
  Transmission Date: 20111010
  Serious: Yes (Other)
  Sender: FDA-Public Use
  Company Number: US-JNJFOC-20110600961

PATIENT
  Sex: Female
  Weight: 110.7 kg

DRUGS (21)
  1. LORATADINE [Concomitant]
  2. CALCIUM CARBONATE [Concomitant]
  3. FLONASE [Concomitant]
  4. ADVAIR DISKUS 100/50 [Concomitant]
  5. RANITIDINE [Concomitant]
  6. REMICADE [Suspect]
     Indication: RHEUMATOID ARTHRITIS
     Route: 042
     Dates: end: 20090101
  7. ACETAMINOPHEN [Concomitant]
  8. ALBUTEROL SULFATE AUTOHALER [Concomitant]
  9. BEANO [Concomitant]
  10. DIGOXIN [Concomitant]
  11. FUROSEMIDE [Concomitant]
  12. HYDROCODONE BITARTRATE AND ACETAMINOPHEN [Concomitant]
  13. PHENTERMINE [Concomitant]
  14. FOLIC ACID [Concomitant]
  15. WARFARIN SODIUM [Concomitant]
  16. POTASSIUM CHLORIDE [Concomitant]
  17. ERGOCALCIFEROL [Concomitant]
  18. ROPINIROLE [Concomitant]
  19. METHOTREXATE [Concomitant]
  20. M.V.I. [Concomitant]
  21. SPIRIVA [Concomitant]

REACTIONS (1)
  - LYMPHOMA [None]
